FAERS Safety Report 7900832-9 (Version None)
Quarter: 2011Q4

REPORT INFORMATION
  Report Type: 
  Country: None (occurrence: None)
  Receive Date: 20111108
  Receipt Date: 20111108
  Transmission Date: 20120403
  Serious: Yes (Hospitalization)
  Sender: FDA-Public Use
  Company Number: None

PATIENT
  Sex: Male
  Weight: 4.69 kg

DRUGS (1)
  1. LOVENOX [Suspect]
     Indication: THROMBOSIS
     Dates: start: 20110810, end: 20110811

REACTIONS (1)
  - INCORRECT DOSE ADMINISTERED [None]
